FAERS Safety Report 25207453 (Version 1)
Quarter: 2025Q2

REPORT INFORMATION
  Report Type: Spontaneous
  Country: US (occurrence: None)
  Receive Date: 20250417
  Receipt Date: 20250417
  Transmission Date: 20250717
  Serious: Yes (Hospitalization)
  Sender: FDA-CTU
  Company Number: None

PATIENT
  Age: 56 Year
  Sex: Female
  Weight: 70.2 kg

DRUGS (1)
  1. CISPLATIN [Suspect]
     Active Substance: CISPLATIN
     Dates: end: 20250414

REACTIONS (8)
  - Oropharyngeal pain [None]
  - Oesophageal pain [None]
  - Dysphagia [None]
  - Dysphagia [None]
  - Nonspecific reaction [None]
  - Nausea [None]
  - Weight decreased [None]
  - Hypophagia [None]

NARRATIVE: CASE EVENT DATE: 20250411
